FAERS Safety Report 20395722 (Version 2)
Quarter: 2022Q1

REPORT INFORMATION
  Report Type: Spontaneous
  Country: JP (occurrence: JP)
  Receive Date: 20220130
  Receipt Date: 20220214
  Transmission Date: 20220424
  Serious: Yes (Hospitalization, Other)
  Sender: FDA-Public Use
  Company Number: JP-SA-2022SA022282

PATIENT
  Age: 50 Year
  Sex: Male

DRUGS (1)
  1. CLOPIDOGREL BISULFATE [Suspect]
     Active Substance: CLOPIDOGREL BISULFATE
     Indication: Prophylaxis
     Route: 065

REACTIONS (3)
  - Colitis ischaemic [Recovering/Resolving]
  - Haematochezia [Recovering/Resolving]
  - Diverticulum intestinal haemorrhagic [Recovering/Resolving]
